FAERS Safety Report 8312908-5 (Version None)
Quarter: 2012Q2

REPORT INFORMATION
  Report Type: 
  Country: None (occurrence: None)
  Receive Date: 20120424
  Receipt Date: 20120410
  Transmission Date: 20120825
  Serious: Yes (Other)
  Sender: FDA-Public Use
  Company Number: 2012P1012633

PATIENT
  Age: 43 Year
  Sex: Male
  Weight: 105.2345 kg

DRUGS (10)
  1. SYNTHROID [Concomitant]
  2. NOVOLOG [Concomitant]
  3. DIOVAN [Concomitant]
  4. CYMBALTA [Concomitant]
  5. METFORMIN HCL [Concomitant]
  6. FENTANYL-75 [Suspect]
     Indication: NEUROPATHY PERIPHERAL
     Dosage: 1 PATCH;Q48H;TDER
     Route: 062
     Dates: start: 20110401
  7. ACTOS [Concomitant]
  8. LEVEMIR [Concomitant]
  9. SIMVASTATIN [Concomitant]
  10. SERTRALINE HYDROCHLORIDE [Concomitant]

REACTIONS (5)
  - FEELING JITTERY [None]
  - DEVICE INEFFECTIVE [None]
  - DRUG WITHDRAWAL SYNDROME [None]
  - NAUSEA [None]
  - TREMOR [None]
